FAERS Safety Report 23504213 (Version 2)
Quarter: 2024Q2

REPORT INFORMATION
  Report Type: Report from Study
  Country: US (occurrence: US)
  Receive Date: 20240209
  Receipt Date: 20240621
  Transmission Date: 20240716
  Serious: Yes (Hospitalization)
  Sender: FDA-Public Use
  Company Number: US-ABBVIE-5625103

PATIENT
  Age: 70 Year
  Sex: Female

DRUGS (2)
  1. HUMIRA [Suspect]
     Active Substance: ADALIMUMAB
     Indication: Psoriasis
     Dosage: STRENGTH 40 MG, CITRATE FREE
     Route: 058
     Dates: start: 20230126
  2. HUMIRA [Suspect]
     Active Substance: ADALIMUMAB
     Dosage: STRENGTH 40 MG, CITRATE FREE
     Route: 058
     Dates: start: 20190605

REACTIONS (5)
  - Haemorrhoids [Unknown]
  - Ulcer haemorrhage [Not Recovered/Not Resolved]
  - Postoperative wound infection [Unknown]
  - Toothache [Unknown]
  - Illness [Unknown]

NARRATIVE: CASE EVENT DATE: 20230701
